FAERS Safety Report 8555281-X (Version None)
Quarter: 2012Q3

REPORT INFORMATION
  Report Type: 
  Country: None (occurrence: None)
  Receive Date: 20120731
  Receipt Date: 20111103
  Transmission Date: 20120928
  Serious: Yes (Other)
  Sender: FDA-Public Use
  Company Number: US-ASTRAZENECA-2011SE53406

PATIENT
  Age: 48 Year
  Sex: Female
  Weight: 76.2 kg

DRUGS (4)
  1. SEROQUEL [Suspect]
     Route: 048
  2. SEROQUEL [Suspect]
     Dosage: 50 MG 1-2 TABLETS BID TO TID
     Route: 048
  3. SEROQUEL [Suspect]
     Indication: BIPOLAR DISORDER
     Dosage: 50 MG 1-2 TABLETS BID TO TID
     Route: 048
     Dates: start: 20010101
  4. NAFAZODONE [Concomitant]
     Route: 048

REACTIONS (10)
  - PSYCHOTIC DISORDER [None]
  - MUSCLE TIGHTNESS [None]
  - DRY MOUTH [None]
  - DRUG DOSE OMISSION [None]
  - FEELING ABNORMAL [None]
  - INCORRECT DOSE ADMINISTERED [None]
  - SUICIDAL IDEATION [None]
  - ANXIETY [None]
  - IMPAIRED WORK ABILITY [None]
  - ACTIVITIES OF DAILY LIVING IMPAIRED [None]
